FAERS Safety Report 19372075 (Version 3)
Quarter: 2021Q3

REPORT INFORMATION
  Report Type: Spontaneous
  Country: PL (occurrence: PL)
  Receive Date: 20210604
  Receipt Date: 20210702
  Transmission Date: 20211014
  Serious: Yes (Life-Threatening, Hospitalization)
  Sender: FDA-Public Use
  Company Number: PL-BAUSCH-BL-2021-019463

PATIENT
  Sex: Male
  Weight: 78 kg

DRUGS (28)
  1. DEXAVEN [Suspect]
     Active Substance: DEXAMETHASONE
     Indication: COVID-19
  2. NACL [Suspect]
     Active Substance: SODIUM CHLORIDE
     Indication: COVID-19
     Route: 065
  3. LACIDOFIL [Suspect]
     Active Substance: PROBIOTICS NOS
     Indication: COVID-19
     Route: 065
  4. FILGOTINIB [Suspect]
     Active Substance: FILGOTINIB
     Indication: RHEUMATOID ARTHRITIS
     Dosage: CUMULATIVE DOSE (102800)
     Route: 048
     Dates: start: 20180619, end: 20210421
  5. NOLPAZA [Concomitant]
     Active Substance: PANTOPRAZOLE SODIUM
     Indication: PRODUCT USED FOR UNKNOWN INDICATION
     Dates: start: 2011
  6. OXYGEN. [Suspect]
     Active Substance: OXYGEN
     Indication: COVID-19
     Route: 065
  7. PULMICORT TURBUHALER [Suspect]
     Active Substance: BUDESONIDE
     Route: 055
     Dates: start: 20210421, end: 20210514
  8. CO BESPRES [Concomitant]
     Indication: PRODUCT USED FOR UNKNOWN INDICATION
     Dates: start: 20170628
  9. VITAMIN C [Concomitant]
     Active Substance: ASCORBIC ACID
     Indication: PRODUCT USED FOR UNKNOWN INDICATION
     Dates: start: 2005
  10. DEXAVEN [Suspect]
     Active Substance: DEXAMETHASONE
     Indication: COVID-19
     Route: 065
  11. FEBROFEN [Concomitant]
     Active Substance: KETOPROFEN
     Indication: PRODUCT USED FOR UNKNOWN INDICATION
     Dates: start: 2010
  12. METHOTREXATE. [Concomitant]
     Active Substance: METHOTREXATE
     Indication: PRODUCT USED FOR UNKNOWN INDICATION
     Dates: start: 2011, end: 20210506
  13. ELECTROLYTE SOLUTIONS [Concomitant]
     Active Substance: UNSPECIFIED INGREDIENT
     Indication: PRODUCT USED FOR UNKNOWN INDICATION
     Dates: start: 20210421, end: 20210514
  14. SLOW MAG [Concomitant]
     Active Substance: MAGNESIUM CHLORIDE
     Indication: PRODUCT USED FOR UNKNOWN INDICATION
     Dates: start: 2015
  15. INNO.N SODIUM CHLORIDE [Concomitant]
     Indication: PRODUCT USED FOR UNKNOWN INDICATION
     Dates: start: 20210421, end: 20210514
  16. LACIDOFIL [Suspect]
     Active Substance: PROBIOTICS NOS
     Route: 048
     Dates: start: 20210421, end: 20210514
  17. CLEXANE [Suspect]
     Active Substance: ENOXAPARIN SODIUM
     Indication: COVID-19
     Route: 065
  18. ATROX [Concomitant]
     Active Substance: ATORVASTATIN CALCIUM
     Indication: PRODUCT USED FOR UNKNOWN INDICATION
     Dates: start: 2015
  19. VITAMIN K2 [Concomitant]
     Active Substance: MENAQUINONE 6
     Indication: PRODUCT USED FOR UNKNOWN INDICATION
     Dates: start: 201703
  20. MAGNE B6 FORTE [Concomitant]
     Active Substance: MAGNESIUM CITRATE\PYRIDOXINE
     Indication: PRODUCT USED FOR UNKNOWN INDICATION
     Dates: start: 2016
  21. TOCILIZUMAB. [Suspect]
     Active Substance: TOCILIZUMAB
     Indication: COVID-19
     Route: 065
  22. OXYGEN. [Suspect]
     Active Substance: OXYGEN
     Route: 055
     Dates: start: 20210421, end: 20210514
  23. FLEGAMINE [Suspect]
     Active Substance: BROMHEXINE HYDROCHLORIDE
     Indication: COVID-19
     Route: 065
  24. PULMICORT TURBUHALER [Suspect]
     Active Substance: BUDESONIDE
     Indication: COVID-19
     Route: 055
  25. CLEXANE [Suspect]
     Active Substance: ENOXAPARIN SODIUM
     Route: 058
     Dates: start: 20210421, end: 20210514
  26. BIOTRAKSON [Suspect]
     Active Substance: CEFTRIAXONE SODIUM
     Indication: COVID-19
     Route: 065
  27. TOCILIZUMAB. [Suspect]
     Active Substance: TOCILIZUMAB
     Route: 065
     Dates: start: 20210421, end: 20210514
  28. ACIDUM FOLICUM [Concomitant]
     Active Substance: FOLIC ACID
     Indication: PRODUCT USED FOR UNKNOWN INDICATION
     Dates: start: 2011

REACTIONS (5)
  - Acute respiratory failure [Recovered/Resolved]
  - Chronic respiratory failure [Not Recovered/Not Resolved]
  - COVID-19 [Recovered/Resolved]
  - Pulmonary embolism [Not Recovered/Not Resolved]
  - Interstitial lung disease [Recovered/Resolved]

NARRATIVE: CASE EVENT DATE: 20210411
